FAERS Safety Report 4263884-6 (Version None)
Quarter: 2004Q1

REPORT INFORMATION
  Report Type: 
  Country: None (occurrence: None)
  Receive Date: 20040102
  Receipt Date: 20031218
  Transmission Date: 20041129
  Serious: No
  Sender: FDA-Public Use
  Company Number: 2003-111175-NL

PATIENT
  Age: 32 Year
  Sex: Female

DRUGS (4)
  1. MIRTAZAPINE [Suspect]
  2. VALPROATE SODIUM [Concomitant]
  3. LITHIUM CARBONATE [Concomitant]
  4. RISPERIDONE [Concomitant]

REACTIONS (3)
  - ALANINE AMINOTRANSFERASE INCREASED [None]
  - ASPARTATE AMINOTRANSFERASE INCREASED [None]
  - LIVER FUNCTION TEST ABNORMAL [None]
